FAERS Safety Report 7027106-5 (Version None)
Quarter: 2010Q4

REPORT INFORMATION
  Report Type: 
  Country: None (occurrence: None)
  Receive Date: 20101001
  Receipt Date: 20101001
  Transmission Date: 20110411
  Serious: No
  Sender: FDA-Public Use
  Company Number: None

PATIENT
  Sex: Female
  Weight: 69.54 kg

DRUGS (2)
  1. FLUOXETINE [Suspect]
     Indication: ANXIETY
     Dosage: 3 CAPSULES DAILY PO
     Route: 048
     Dates: start: 20080301, end: 20100901
  2. FLUOXETINE [Suspect]
     Indication: DEPRESSION
     Dosage: 3 CAPSULES DAILY PO
     Route: 048
     Dates: start: 20080301, end: 20100901

REACTIONS (1)
  - DRUG INEFFECTIVE [None]
